FAERS Safety Report 6643817-5 (Version None)
Quarter: 2010Q1

REPORT INFORMATION
  Report Type: 
  Country: None (occurrence: None)
  Receive Date: 20100322
  Receipt Date: 20100312
  Transmission Date: 20100710
  Serious: Yes (Hospitalization)
  Sender: FDA-Public Use
  Company Number: US-JNJFOC-20100304663

PATIENT
  Sex: Female
  Weight: 61.24 kg

DRUGS (6)
  1. SANDOZ FENTANYL TRANSDREMAL SYSTEM [Suspect]
     Indication: ABDOMINAL PAIN UPPER
     Route: 062
  2. SANDOZ FENTANYL TRANSDREMAL SYSTEM [Suspect]
     Indication: BACK PAIN
     Route: 062
  3. FENTANYL [Suspect]
     Indication: ABDOMINAL PAIN UPPER
     Route: 062
  4. FENTANYL [Suspect]
     Indication: BACK PAIN
     Route: 062
  5. DILTIAZEM HCL [Concomitant]
     Indication: CARDIAC DISORDER
     Route: 048
  6. VYTORIN [Concomitant]
     Indication: BLOOD CHOLESTEROL INCREASED
     Dosage: 10MG/40MG
     Route: 048

REACTIONS (6)
  - APPLICATION SITE PRURITUS [None]
  - BREAST CANCER [None]
  - CARDIAC FAILURE CONGESTIVE [None]
  - GASTROOESOPHAGEAL REFLUX DISEASE [None]
  - PAIN [None]
  - WRONG TECHNIQUE IN DRUG USAGE PROCESS [None]
